FAERS Safety Report 19586927 (Version 1)
Quarter: 2021Q3

REPORT INFORMATION
  Report Type: Spontaneous
  Country: CN (occurrence: CN)
  Receive Date: 20210720
  Receipt Date: 20210720
  Transmission Date: 20211014
  Serious: Yes (Hospitalization)
  Sender: FDA-Public Use
  Company Number: CN-BAXTER-2021BAX020922

PATIENT
  Age: 72 Year
  Sex: Female
  Weight: 49 kg

DRUGS (6)
  1. DUOMEISU [Suspect]
     Active Substance: DOXORUBICIN HYDROCHLORIDE
     Indication: BREAST CANCER FEMALE
     Dosage: 1ST CYCLE OF CHEMOTHERAPY
     Route: 041
  2. ENDOXAN [Suspect]
     Active Substance: CYCLOPHOSPHAMIDE
     Indication: BREAST CANCER FEMALE
     Dosage: 1ST CYCLE OF CHEMOTHERAPY: ENDOXAN + 0.9% SODIUM CHLORIDE
     Route: 041
  3. ENDOXAN [Suspect]
     Active Substance: CYCLOPHOSPHAMIDE
     Dosage: 2ND CYCLE OF CHEMOTHERAPY: ENDOXAN 0.9 G + 0.9% SODIUM CHLORIDE 500ML
     Route: 041
     Dates: start: 20210607, end: 20210608
  4. 0.9% SODIUM CHLORIDE INJECTION [Suspect]
     Active Substance: SODIUM CHLORIDE
     Dosage: 2ND CYCLE OF CHEMOTHERAPY: ENDOXAN 0.9 G + 0.9% SODIUM CHLORIDE 500ML
     Route: 041
     Dates: start: 20210607, end: 20210608
  5. DUOMEISU [Suspect]
     Active Substance: DOXORUBICIN HYDROCHLORIDE
     Dosage: 2ND CYCLE OF CHEMOTHERAPY
     Route: 041
     Dates: start: 20210607, end: 20210608
  6. 0.9% SODIUM CHLORIDE INJECTION [Suspect]
     Active Substance: SODIUM CHLORIDE
     Indication: MEDICATION DILUTION
     Dosage: 1ST CYCLE OF CHEMOTHERAPY: ENDOXAN + 0.9% SODIUM CHLORIDE
     Route: 041

REACTIONS (2)
  - Seizure [Recovering/Resolving]
  - Vomiting [Unknown]

NARRATIVE: CASE EVENT DATE: 20210609
